FAERS Safety Report 10362879 (Version 1)
Quarter: 2014Q3

REPORT INFORMATION
  Report Type: Spontaneous
  Country: US (occurrence: US)
  Receive Date: 20140805
  Receipt Date: 20140805
  Transmission Date: 20150326
  Serious: Yes (Congenital Anomaly)
  Sender: FDA-Public Use
  Company Number: US-FRI-1000069547

PATIENT
  Age: 0 Day
  Sex: Male

DRUGS (1)
  1. CELEXA [Suspect]
     Active Substance: CITALOPRAM HYDROBROMIDE
     Dates: end: 20050112

REACTIONS (8)
  - Heart valve incompetence [Unknown]
  - Congenital anomaly [Unknown]
  - Hypoplastic left heart syndrome [Unknown]
  - Gastrointestinal fistula [Unknown]
  - Double outlet right ventricle [Unknown]
  - Ventricular septal defect [Unknown]
  - Congenital pulmonary valve atresia [Unknown]
  - Anal atresia [Unknown]

NARRATIVE: CASE EVENT DATE: 20050112
